FAERS Safety Report 9806455 (Version 1)
Quarter: 2014Q1

REPORT INFORMATION
  Report Type: Spontaneous
  Country: US (occurrence: US)
  Receive Date: 20140109
  Receipt Date: 20140109
  Transmission Date: 20141002
  Serious: Yes (Hospitalization)
  Sender: FDA-Public Use
  Company Number: US-MALLINCKRODT-T201304318

PATIENT
  Age: 69 Year
  Sex: Female

DRUGS (1)
  1. OPTIRAY [Suspect]
     Indication: COMPUTERISED TOMOGRAM
     Dosage: 100 ML, SINGLE, PREFILLED SYRINGE, 4.5ML/SEC INJECTION RATE
     Route: 042
     Dates: start: 20130817, end: 20130817

REACTIONS (3)
  - Injection site swelling [Not Recovered/Not Resolved]
  - Injection site extravasation [Recovered/Resolved]
  - Drug administration error [Recovered/Resolved]
